FAERS Safety Report 8510943 (Version 3)
Quarter: 2013Q2

REPORT INFORMATION
  Report Type: Report from Study
  Country: FR (occurrence: FR)
  Receive Date: 20120413
  Receipt Date: 20130402
  Transmission Date: 20140414
  Serious: Yes (Hospitalization, Other)
  Sender: FDA-Public Use
  Company Number: FR-MILLENNIUM PHARMACEUTICALS, INC.-2012-02416

PATIENT
  Sex: 0

DRUGS (6)
  1. VELCADE [Suspect]
     Indication: PLASMA CELL MYELOMA
     Dosage: 1.3 MG/M2, UNK
     Route: 042
     Dates: start: 20110927
  2. VELCADE [Suspect]
     Dosage: 1 MG/M2, UNK
     Route: 042
     Dates: start: 20111226, end: 20120116
  3. VELCADE [Suspect]
     Dosage: 0.7 MG/M2, UNK
     Route: 042
  4. DEXAMETHASONE [Suspect]
     Indication: PLASMA CELL MYELOMA
     Dosage: 20 MG, UNK
     Route: 048
     Dates: start: 20110927
  5. OXYNORM [Concomitant]
     Indication: PAIN
     Dosage: 20 MG, UNK
     Dates: start: 20111024
  6. OXYCONTIN [Concomitant]
     Indication: PAIN
     Dosage: 20 MG, UNK
     Dates: start: 20111024

REACTIONS (3)
  - Radiculitis lumbosacral [Recovering/Resolving]
  - Tendonitis [Recovered/Resolved with Sequelae]
  - Neuropathy peripheral [Unknown]
